FAERS Safety Report 7595884-2 (Version None)
Quarter: 2011Q3

REPORT INFORMATION
  Report Type: 
  Country: None (occurrence: None)
  Receive Date: 20110707
  Receipt Date: 20110628
  Transmission Date: 20111222
  Serious: Yes (Hospitalization, Other)
  Sender: FDA-Public Use
  Company Number: US-ASTRAZENECA-2011SE39017

PATIENT
  Age: 78 Year
  Sex: Female
  Weight: 77.6 kg

DRUGS (6)
  1. CARDIZEM CD [Suspect]
  2. LEVOTHROID [Suspect]
  3. LEVOTHYROXINE SODIUM [Suspect]
  4. PRILOSEC [Suspect]
     Route: 048
  5. ASPIRIN [Suspect]
  6. CRESTOR [Suspect]
     Route: 048

REACTIONS (13)
  - ESSENTIAL HYPERTENSION [None]
  - HYPERTENSION [None]
  - THYROID DISORDER [None]
  - BREAST DISORDER [None]
  - BREAST LUMP REMOVAL [None]
  - BASEDOW'S DISEASE [None]
  - HYPERLIPIDAEMIA [None]
  - THYROIDECTOMY [None]
  - CATARACT CORTICAL [None]
  - MASTECTOMY [None]
  - OSTEOPENIA [None]
  - BREAST MASS [None]
  - HYPOTHYROIDISM [None]
